FAERS Safety Report 24717713 (Version 1)
Quarter: 2024Q4

REPORT INFORMATION
  Report Type: Report from Study
  Country: BE (occurrence: BE)
  Receive Date: 20241210
  Receipt Date: 20241210
  Transmission Date: 20250114
  Serious: Yes (Other)
  Sender: ABBVIE
  Company Number: BE-ABBVIE-6038850

PATIENT
  Age: 81 Year
  Sex: Male

DRUGS (12)
  1. CARBIDOPA\LEVODOPA [Suspect]
     Active Substance: CARBIDOPA\LEVODOPA
     Indication: Parkinson^s disease
     Route: 050
     Dates: start: 20230116
  2. CARBIDOPA\LEVODOPA [Suspect]
     Active Substance: CARBIDOPA\LEVODOPA
     Dosage: PUMP TYPE : SPARE PUMP, MORNING DOSAGE : 8.8 ML, ADDITIONAL TUBE FILING : 3.0 ML, CONTINUOUS DOSI...
     Route: 050
     Dates: start: 20240729, end: 20240911
  3. CARBIDOPA\LEVODOPA [Suspect]
     Active Substance: CARBIDOPA\LEVODOPA
     Dosage: PUMP TYPE :  SPARE PUMP, CONTINUOUS DOSING : 3.7 ML/HR, NIGHT CONTINUOUS DOSAGE : 3.7 ML/HR, THER...
     Route: 050
     Dates: start: 20240911, end: 20240927
  4. CARBIDOPA\LEVODOPA [Suspect]
     Active Substance: CARBIDOPA\LEVODOPA
     Dosage: PUMP TYPE : SPARE PUMP, MORNING DOSAGE : 8.8 ML, ADDITIONAL TUBE FILING  : 3.0ML, CONTINUOUS DOSI...
     Route: 050
     Dates: start: 20240927
  5. CLEEN [Concomitant]
     Indication: Constipation
     Dosage: TIME INTERVAL: AS NECESSARY: ENEMA
  6. Microlax [Concomitant]
     Indication: Constipation
     Dosage: TIME INTERVAL: AS NECESSARY
  7. TRAZODONE [Concomitant]
     Active Substance: TRAZODONE HYDROCHLORIDE
     Indication: Antidepressant therapy
     Dosage: 22:30
  8. BENSERAZIDE\LEVODOPA [Concomitant]
     Active Substance: BENSERAZIDE\LEVODOPA
     Indication: Parkinson^s disease
     Dosage: 125 HBS AT BEDTIME
  9. XADAGO [Concomitant]
     Active Substance: SAFINAMIDE MESYLATE
     Indication: Parkinson^s disease
  10. STALEVO [Concomitant]
     Active Substance: CARBIDOPA\ENTACAPONE\LEVODOPA
     Indication: Parkinson^s disease
     Dosage: 125 6 AM, 9:30AM, 6:30PM, 9:30PM,150 12:30, 100 15:30
  11. PERINDOPRIL [Concomitant]
     Active Substance: PERINDOPRIL
     Indication: Product used for unknown indication
  12. ACETAMINOPHEN [Concomitant]
     Active Substance: ACETAMINOPHEN
     Indication: Analgesic therapy
     Dosage: 1 G MAX 4 X PER DAY

REACTIONS (2)
  - Embedded device [Unknown]
  - Device issue [Unknown]

NARRATIVE: CASE EVENT DATE: 20240101
